FAERS Safety Report 9012189 (Version 1)
Quarter: 2013Q1

REPORT INFORMATION
  Report Type: Spontaneous
  Country: US (occurrence: US)
  Receive Date: 20130114
  Receipt Date: 20130114
  Transmission Date: 20140127
  Serious: Yes (Other)
  Sender: FDA-Public Use
  Company Number: US-JNJCP-30000142576

PATIENT
  Sex: Female
  Weight: 73 kg

DRUGS (3)
  1. AVEENO CLEAR COMPLEXION DAILY MOISTURIZER [Suspect]
     Dosage: ONE WIPE ONE TIME
     Route: 061
     Dates: start: 20121229, end: 20121229
  2. MULTIVITAMIN [Concomitant]
     Indication: ROUTINE HEALTH MAINTENANCE
     Dosage: ONCE A DAY
  3. VITAMIN D [Concomitant]
     Indication: ROUTINE HEALTH MAINTENANCE
     Dosage: ONCE A DAY

REACTIONS (8)
  - Application site pruritus [Not Recovered/Not Resolved]
  - Application site swelling [Not Recovered/Not Resolved]
  - Application site dryness [Not Recovered/Not Resolved]
  - Application site rash [Not Recovered/Not Resolved]
  - Application site exfoliation [Not Recovered/Not Resolved]
  - Dysphagia [Not Recovered/Not Resolved]
  - Dry eye [Recovering/Resolving]
  - Eye pruritus [Recovering/Resolving]
